FAERS Safety Report 7927381-6 (Version None)
Quarter: 2011Q4

REPORT INFORMATION
  Report Type: 
  Country: None (occurrence: None)
  Receive Date: 20111118
  Receipt Date: 20111108
  Transmission Date: 20120403
  Serious: Yes (Other)
  Sender: FDA-Public Use
  Company Number: US-BAYER-201030110NA

PATIENT
  Age: 39 Year
  Sex: Female
  Weight: 126.98 kg

DRUGS (22)
  1. DROSPIRENONE AND ETHINYL ESTRADIOL [Suspect]
     Indication: PRODUCT USED FOR UNKNOWN INDICATION
     Route: 048
     Dates: start: 20030801
  2. HYDROCHLOROTHIAZIDE [Concomitant]
     Dosage: UNK
     Dates: start: 20090101
  3. ZITHROMAX [Concomitant]
     Dosage: UNK
     Dates: start: 20050101
  4. PROZAC [Concomitant]
     Dosage: UNK
     Dates: start: 20090101
  5. ACETAMINOPHEN W/ PROPOXYPHENE HCL [Concomitant]
  6. FLOVENT [Concomitant]
     Dosage: UNK
     Dates: start: 20040101
  7. HYDROCHLOROTHIAZIDE [Concomitant]
     Dosage: UNK
     Dates: start: 20070101
  8. ALBUTEROL [Concomitant]
     Dosage: UNK
     Route: 049
     Dates: start: 20040101
  9. MOTRIN [Concomitant]
     Dosage: 400 MG, PRN
     Dates: start: 20060101
  10. ACE INHIBITOR NOS [Concomitant]
  11. ERYTHROMYCIN [Concomitant]
     Dosage: 2 %, UNK
  12. ASCORBIC ACID [Concomitant]
     Dosage: UNK
     Dates: start: 20010101
  13. OMEPRAZOLE [Concomitant]
     Dosage: 20 MG, UNK
  14. DAPSONE [Concomitant]
     Dosage: 5 %, UNK
  15. YAZ [Suspect]
     Indication: PRODUCT USED FOR UNKNOWN INDICATION
     Route: 048
     Dates: start: 20030801
  16. CLINDAMYCIN [Concomitant]
     Dosage: UNK
     Dates: start: 20060101
  17. HYDROCHLOROTHIAZIDE [Concomitant]
     Dosage: UNK
     Dates: start: 20080101
  18. TOPAMAX [Concomitant]
     Dosage: UNK
     Dates: start: 20020101
  19. VENTOLIN [Concomitant]
     Dosage: UNK
     Dates: start: 20040101
  20. SEREVENT [Concomitant]
     Dosage: UNK
     Dates: start: 20040101
  21. YASMIN [Suspect]
     Indication: PRODUCT USED FOR UNKNOWN INDICATION
     Route: 048
     Dates: start: 20030801
  22. PRILOSEC [Concomitant]
     Dosage: UNK
     Dates: start: 20060101

REACTIONS (4)
  - GALLBLADDER DISORDER [None]
  - DEPRESSION [None]
  - GALLBLADDER CHOLESTEROLOSIS [None]
  - CHOLECYSTITIS CHRONIC [None]
